FAERS Safety Report 8537602-7 (Version None)
Quarter: 2012Q3

REPORT INFORMATION
  Report Type: 
  Country: None (occurrence: None)
  Receive Date: 20120712
  Receipt Date: 20120702
  Transmission Date: 20120928
  Serious: Yes (Death, Hospitalization)
  Sender: FDA-Public Use
  Company Number: 2012S1000755

PATIENT
  Age: 67 Year
  Sex: Male

DRUGS (11)
  1. DISOPYRAMIDE [Suspect]
     Dosage: 150 MG; 1X; PO
     Route: 048
     Dates: start: 20060801
  2. ALLEGRA [Suspect]
     Dosage: PO
     Route: 048
  3. MUCODYNE (CARBOCISTEINE) [Suspect]
     Dosage: 500 MG; TID; PO
     Route: 048
  4. TICLOPIDINE HCL [Suspect]
     Dosage: 100 MG; 1X; PO
     Route: 048
     Dates: start: 20060801
  5. NASONEX [Suspect]
     Dosage: NAS
     Route: 045
  6. LIVALO [Suspect]
     Indication: HYPERCHOLESTEROLAEMIA
     Dosage: 1 MG; 1X; PO, 4 MG; 1X; PO, 1 MG; 1X; PO
     Route: 048
     Dates: start: 20120515, end: 20120518
  7. LIVALO [Suspect]
     Indication: HYPERCHOLESTEROLAEMIA
     Dosage: 1 MG; 1X; PO, 4 MG; 1X; PO, 1 MG; 1X; PO
     Route: 048
     Dates: start: 20120518
  8. LIVALO [Suspect]
     Indication: HYPERCHOLESTEROLAEMIA
     Dosage: 1 MG; 1X; PO, 4 MG; 1X; PO, 1 MG; 1X; PO
     Route: 048
     Dates: start: 20060801, end: 20120514
  9. NORVASC [Suspect]
     Dosage: 5 MG; 1X; PO
     Route: 048
     Dates: start: 20060801
  10. FAMOTIDINE [Suspect]
     Dosage: PO
     Route: 048
     Dates: start: 20060801
  11. SHAKUYAKUKANZOTO (SHAKUYAKUKANZOTO) [Suspect]
     Dosage: PO
     Route: 048

REACTIONS (6)
  - CEREBRAL HAEMORRHAGE [None]
  - ALANINE AMINOTRANSFERASE INCREASED [None]
  - ASPARTATE AMINOTRANSFERASE INCREASED [None]
  - HEPATIC FUNCTION ABNORMAL [None]
  - GAMMA-GLUTAMYLTRANSFERASE INCREASED [None]
  - C-REACTIVE PROTEIN INCREASED [None]
